APPROVED DRUG PRODUCT: PILOCARPINE HYDROCHLORIDE
Active Ingredient: PILOCARPINE HYDROCHLORIDE
Strength: 2%
Dosage Form/Route: SOLUTION/DROPS;OPHTHALMIC
Application: A214193 | Product #002 | TE Code: AT
Applicant: AMNEAL EU LTD
Approved: Sep 21, 2020 | RLD: No | RS: No | Type: RX